FAERS Safety Report 18705426 (Version 2)
Quarter: 2021Q1

REPORT INFORMATION
  Report Type: Spontaneous
  Country: NP (occurrence: NP)
  Receive Date: 20210106
  Receipt Date: 20210331
  Transmission Date: 20210419
  Serious: Yes (Hospitalization, Other)
  Sender: FDA-Public Use
  Company Number: NP-LUPIN PHARMACEUTICALS INC.-2020-11353

PATIENT
  Age: 16 Year
  Sex: Male

DRUGS (1)
  1. AZITHROMYCIN ANHYDROUS. [Suspect]
     Active Substance: AZITHROMYCIN ANHYDROUS
     Indication: ACNE
     Dosage: UNK UNK, QD RECEIVED 2 DOSES
     Route: 065

REACTIONS (3)
  - Lactic acidosis [Recovered/Resolved]
  - Delirium [Recovering/Resolving]
  - Acute generalised exanthematous pustulosis [Recovering/Resolving]
